FAERS Safety Report 11226435 (Version 2)
Quarter: 2015Q3

REPORT INFORMATION
  Report Type: Spontaneous
  Country: US (occurrence: US)
  Receive Date: 20150629
  Receipt Date: 20150910
  Transmission Date: 20151125
  Serious: No
  Sender: FDA-Public Use
  Company Number: US-009507513-1506USA012961

PATIENT
  Age: 20 Year
  Sex: Female
  Weight: 56.24 kg

DRUGS (1)
  1. NEXPLANON [Suspect]
     Active Substance: ETONOGESTREL
     Indication: CONTRACEPTION
     Dosage: 1 ROD FOR THREE YEARS
     Route: 059
     Dates: start: 20150504, end: 2015

REACTIONS (5)
  - Headache [Recovered/Resolved]
  - Menorrhagia [Recovered/Resolved]
  - Menstruation irregular [Not Recovered/Not Resolved]
  - Dizziness [Recovered/Resolved]
  - Mood swings [Recovered/Resolved]

NARRATIVE: CASE EVENT DATE: 20150511
